FAERS Safety Report 9163376 (Version 1)
Quarter: 2013Q1

REPORT INFORMATION
  Report Type: Spontaneous
  Country: DK (occurrence: DK)
  Receive Date: 20130314
  Receipt Date: 20130314
  Transmission Date: 20140127
  Serious: Yes (Life-Threatening)
  Sender: FDA-Public Use
  Company Number: DK-BAYER-2013-030161

PATIENT
  Age: 85 Year
  Sex: Female

DRUGS (10)
  1. XARELTO [Suspect]
     Indication: THROMBOSIS PROPHYLAXIS
     Dosage: 10 MG, QD
     Route: 048
     Dates: start: 20130219
  2. XARELTO [Suspect]
     Indication: KNEE ARTHROPLASTY
  3. ACETYLSALICYLIC ACID({=100 MG) [Suspect]
     Indication: THROMBOSIS PROPHYLAXIS
     Dosage: 75 MG, QD
     Route: 048
     Dates: end: 20130223
  4. CONTALGIN [Concomitant]
  5. SPIRIX [Concomitant]
  6. SIMVASTATIN [Concomitant]
  7. PAMOL [Concomitant]
  8. CITALOPRAM [Concomitant]
  9. PANTOLOC [Concomitant]
  10. LACRIL [Concomitant]

REACTIONS (1)
  - Anaemia [Not Recovered/Not Resolved]
